FAERS Safety Report 6650816-6 (Version None)
Quarter: 2010Q1

REPORT INFORMATION
  Report Type: 
  Country: None (occurrence: None)
  Receive Date: 20100325
  Receipt Date: 20100301
  Transmission Date: 20100710
  Serious: No
  Sender: FDA-Public Use
  Company Number: US-BIOGENIDEC-2010BI007083

PATIENT
  Age: 57 Year
  Sex: Female

DRUGS (4)
  1. TYSABRI [Suspect]
     Indication: MULTIPLE SCLEROSIS
     Route: 042
     Dates: start: 20050205, end: 20050201
  2. TYSABRI [Suspect]
     Route: 042
     Dates: start: 20070215, end: 20091201
  3. AVONEX [Concomitant]
     Indication: MULTIPLE SCLEROSIS
     Route: 030
     Dates: start: 20000101
  4. AVONEX [Concomitant]
     Route: 030

REACTIONS (6)
  - COUGH [None]
  - DYSPHONIA [None]
  - FATIGUE [None]
  - NASOPHARYNGITIS [None]
  - SINUS CONGESTION [None]
  - SINUS HEADACHE [None]
